FAERS Safety Report 13857622 (Version 5)
Quarter: 2019Q1

REPORT INFORMATION
  Report Type: Report from Study
  Country: GB (occurrence: GB)
  Receive Date: 20170811
  Receipt Date: 20190204
  Transmission Date: 20190417
  Serious: Yes (Death, Other)
  Sender: FDA-Public Use
  Company Number: GB-ROCHE-1895497

PATIENT
  Sex: Male
  Weight: 6.13 kg

DRUGS (9)
  1. ORAMORPH [Concomitant]
     Active Substance: MORPHINE SULFATE
  2. ESBRIET [Suspect]
     Active Substance: PIRFENIDONE
     Route: 048
     Dates: start: 20160419
  3. ESBRIET [Suspect]
     Active Substance: PIRFENIDONE
     Indication: IDIOPATHIC PULMONARY FIBROSIS
     Dosage: 2 CAPSULE
     Route: 065
  4. ASPIRIN. [Concomitant]
     Active Substance: ASPIRIN
  5. CARBOCISTEINE [Concomitant]
     Active Substance: CARBOCYSTEINE
  6. ESBRIET [Suspect]
     Active Substance: PIRFENIDONE
     Indication: IDIOPATHIC PULMONARY FIBROSIS
     Route: 048
  7. ESBRIET [Suspect]
     Active Substance: PIRFENIDONE
     Route: 048
  8. OMEPRAZOLE. [Concomitant]
     Active Substance: OMEPRAZOLE
  9. PARACETAMOL [Concomitant]
     Active Substance: ACETAMINOPHEN

REACTIONS (14)
  - Dysphagia [Not Recovered/Not Resolved]
  - Productive cough [Unknown]
  - Nausea [Recovered/Resolved]
  - Decreased appetite [Not Recovered/Not Resolved]
  - Dyspnoea [Not Recovered/Not Resolved]
  - Death [Fatal]
  - Dyspnoea [Unknown]
  - Fatigue [Not Recovered/Not Resolved]
  - Abdominal discomfort [Unknown]
  - Weight decreased [Not Recovered/Not Resolved]
  - Dyspepsia [Recovered/Resolved]
  - Panic reaction [Unknown]
  - Dysgeusia [Unknown]
  - Lung neoplasm malignant [Unknown]

NARRATIVE: CASE EVENT DATE: 20160419
